FAERS Safety Report 9034144 (Version 1)
Quarter: 2013Q1

REPORT INFORMATION
  Report Type: Spontaneous
  Country: US (occurrence: US)
  Receive Date: 20130128
  Receipt Date: 20130128
  Transmission Date: 20140127
  Serious: Yes (Hospitalization)
  Sender: FDA-Public Use
  Company Number: US-AMGEN-USASP2012071400

PATIENT
  Age: 38 Year
  Sex: Male
  Weight: 99.77 kg

DRUGS (2)
  1. ENBREL [Suspect]
     Indication: PRODUCT USED FOR UNKNOWN INDICATION
     Dosage: 25 MG, 2 TIMES/WK
     Route: 058
  2. FLUOCINONIDE [Concomitant]
     Dosage: 0.05 %, UNK

REACTIONS (1)
  - Gallbladder operation [Unknown]
